FAERS Safety Report 6646668-0 (Version None)
Quarter: 2010Q1

REPORT INFORMATION
  Report Type: 
  Country: None (occurrence: None)
  Receive Date: 20100323
  Receipt Date: 20100312
  Transmission Date: 20100710
  Serious: Yes (Death)
  Sender: FDA-Public Use
  Company Number: JP-JNJFOC-20091103624

PATIENT
  Sex: Female

DRUGS (11)
  1. REMICADE [Suspect]
     Indication: RHEUMATOID ARTHRITIS
     Dosage: 3 INFUSIONS TOTAL
     Route: 042
  2. REMICADE [Suspect]
     Dosage: 1 INFUSION ON AN UNSPECIFIED DATE
     Route: 042
  3. REMICADE [Suspect]
     Route: 042
  4. RHEUMATREX [Suspect]
     Indication: RHEUMATOID ARTHRITIS
     Route: 048
  5. PREDONINE [Suspect]
     Indication: RHEUMATOID ARTHRITIS
     Route: 048
  6. ENBREL [Suspect]
     Indication: RHEUMATOID ARTHRITIS
     Route: 058
  7. BASEN [Concomitant]
     Indication: DIABETES MELLITUS
     Route: 048
  8. WARFARIN SODIUM [Concomitant]
     Indication: ANTIPHOSPHOLIPID SYNDROME
     Route: 048
  9. INNOLET N [Concomitant]
     Indication: DIABETES MELLITUS
     Route: 058
  10. MICARDIS [Concomitant]
     Indication: HYPERTENSION
     Route: 048
  11. NORVASC [Concomitant]
     Indication: HYPERTENSION
     Route: 048

REACTIONS (11)
  - ALTERED STATE OF CONSCIOUSNESS [None]
  - DELIRIUM [None]
  - HYPERKALAEMIA [None]
  - HYPERTENSION [None]
  - HYPONATRAEMIA [None]
  - INTERSTITIAL LUNG DISEASE [None]
  - NEPHROSCLEROSIS [None]
  - NO THERAPEUTIC RESPONSE [None]
  - PNEUMOCYSTIS JIROVECI PNEUMONIA [None]
  - RESPIRATORY FAILURE [None]
  - THROMBOSIS [None]
